FAERS Safety Report 13361245 (Version 1)
Quarter: 2017Q1

REPORT INFORMATION
  Report Type: Spontaneous
  Country: DE (occurrence: DE)
  Receive Date: 20170322
  Receipt Date: 20170322
  Transmission Date: 20170429
  Serious: Yes (Hospitalization)
  Sender: FDA-Public Use
  Company Number: DE-ROCHE-1910069

PATIENT
  Age: 77 Year
  Sex: Female

DRUGS (4)
  1. VEMURAFENIB [Suspect]
     Active Substance: VEMURAFENIB
     Indication: MALIGNANT MELANOMA
     Route: 048
     Dates: start: 201303
  2. VEMURAFENIB [Suspect]
     Active Substance: VEMURAFENIB
     Dosage: 2 TABLETS BID
     Route: 048
     Dates: start: 201307
  3. VEMURAFENIB [Suspect]
     Active Substance: VEMURAFENIB
     Dosage: 2 TABLETS BID
     Route: 048
  4. ANASTROZOLE. [Concomitant]
     Active Substance: ANASTROZOLE

REACTIONS (5)
  - Myalgia [Unknown]
  - Bronchospasm [Unknown]
  - Arthralgia [Unknown]
  - Fatigue [Unknown]
  - Rash pustular [Unknown]
